FAERS Safety Report 20989602 (Version 5)
Quarter: 2024Q1

REPORT INFORMATION
  Report Type: Spontaneous
  Country: JP (occurrence: JP)
  Receive Date: 20220621
  Receipt Date: 20240326
  Transmission Date: 20240410
  Serious: Yes (Other)
  Sender: FDA-Public Use
  Company Number: JP-NOVARTISPH-NVSJ2022JP092466

PATIENT
  Sex: Female

DRUGS (4)
  1. ENTRESTO [Suspect]
     Active Substance: SACUBITRIL\VALSARTAN
     Indication: Hypertension
     Dosage: 100 MG, QD
     Route: 048
     Dates: start: 20220401
  2. CILNIDIPINE [Concomitant]
     Active Substance: CILNIDIPINE
     Indication: Product used for unknown indication
     Dosage: 20 MG
     Route: 048
  3. FUROSEMIDE [Concomitant]
     Active Substance: FUROSEMIDE
     Indication: Product used for unknown indication
     Dosage: 60 MG
     Route: 065
  4. TRICHLORMETHIAZIDE [Concomitant]
     Active Substance: TRICHLORMETHIAZIDE
     Indication: Product used for unknown indication
     Dosage: 2 MG
     Route: 065

REACTIONS (5)
  - Blood creatinine increased [Recovered/Resolved]
  - Glomerular filtration rate decreased [Recovered/Resolved]
  - Protein urine present [Recovered/Resolved]
  - Glomerular filtration rate decreased [Recovered/Resolved]
  - Oedema [Unknown]

NARRATIVE: CASE EVENT DATE: 20220527
